FAERS Safety Report 7481609-8 (Version None)
Quarter: 2011Q2

REPORT INFORMATION
  Report Type: 
  Country: None (occurrence: None)
  Receive Date: 20110516
  Receipt Date: 20110504
  Transmission Date: 20111010
  Serious: Yes (Other)
  Sender: FDA-Public Use
  Company Number: GR-ROCHE-775650

PATIENT
  Age: 49 Year
  Sex: Female

DRUGS (2)
  1. XELODA [Suspect]
     Indication: GASTROINTESTINAL CANCER METASTATIC
     Dosage: DOSE, ROUTE AND FREQUENCY WAS NOT REPORTED FOR XELODA
     Route: 065
  2. AVASTIN [Suspect]
     Indication: GASTROINTESTINAL CANCER METASTATIC
     Route: 042

REACTIONS (1)
  - PNEUMOPERITONEUM [None]
